FAERS Safety Report 11330682 (Version 1)
Quarter: 2015Q3

REPORT INFORMATION
  Report Type: Spontaneous
  Country: US (occurrence: None)
  Receive Date: 20150730
  Receipt Date: 20150730
  Transmission Date: 20151125
  Serious: No
  Sender: FDA-Public Use
  Company Number: None

PATIENT
  Age: 66 Year
  Sex: Male
  Weight: 83.92 kg

DRUGS (5)
  1. VIAGRA [Concomitant]
     Active Substance: SILDENAFIL CITRATE
  2. MULTIPLE VITAMINS [Concomitant]
     Active Substance: VITAMINS
  3. ANDROGEL [Concomitant]
     Active Substance: TESTOSTERONE
  4. TYLENOL [Concomitant]
     Active Substance: ACETAMINOPHEN
  5. CELEBREX 200 MG GENERIC [Suspect]
     Active Substance: CELECOXIB
     Indication: ARTHRALGIA
     Dosage: 1 PILL
     Route: 048
     Dates: start: 20150604, end: 20150728

REACTIONS (2)
  - Fatigue [None]
  - Erectile dysfunction [None]

NARRATIVE: CASE EVENT DATE: 20150728
